FAERS Safety Report 21895454 (Version 1)
Quarter: 2023Q1

REPORT INFORMATION
  Report Type: Spontaneous
  Country: IN (occurrence: IN)
  Receive Date: 20230123
  Receipt Date: 20230123
  Transmission Date: 20230418
  Serious: Yes (Hospitalization, Other)
  Sender: FDA-Public Use
  Company Number: IN-ALKEM LABORATORIES LIMITED-IN-ALKEM-2022-14732

PATIENT
  Sex: Male

DRUGS (4)
  1. ENALAPRIL [Suspect]
     Active Substance: ENALAPRIL
     Indication: Cardiac failure congestive
     Dosage: 0.1 MILLIGRAM/KILOGRAM, QD (PER DAY)
     Route: 065
  2. PIPERACILLIN SODIUM\TAZOBACTAM SODIUM [Suspect]
     Active Substance: PIPERACILLIN SODIUM\TAZOBACTAM SODIUM
     Indication: Sepsis neonatal
     Dosage: 100 MILLIGRAM/KILOGRAM, BID
     Route: 042
  3. FUROSEMIDE [Suspect]
     Active Substance: FUROSEMIDE
     Indication: Cardiac failure congestive
     Dosage: 2 MILLIGRAM/KILOGRAM, QD (PER DAY)
     Route: 065
  4. AMIKACIN [Suspect]
     Active Substance: AMIKACIN
     Indication: Sepsis neonatal
     Dosage: 15 MILLIGRAM/KILOGRAM, OD
     Route: 042

REACTIONS (1)
  - Acute kidney injury [Recovering/Resolving]
